FAERS Safety Report 8950160 (Version 1)
Quarter: 2012Q4

REPORT INFORMATION
  Report Type: 
  Country: US (occurrence: US)
  Receive Date: 20121205
  Receipt Date: 20121205
  Transmission Date: 20130627
  Serious: No
  Sender: FDA-Public Use
  Company Number: US-ASTELLAS-2012US001800

PATIENT
  Sex: Female

DRUGS (1)
  1. TARCEVA [Suspect]
     Indication: LUNG NEOPLASM MALIGNANT
     Dosage: 150 mg, UID/QD
     Route: 048
     Dates: start: 201201

REACTIONS (6)
  - Rash [Unknown]
  - Swelling [Unknown]
  - Dry eye [Unknown]
  - Eye pruritus [Unknown]
  - Lacrimation increased [Unknown]
  - Ocular hyperaemia [Unknown]
